FAERS Safety Report 5814995-2 (Version None)
Quarter: 2008Q3

REPORT INFORMATION
  Report Type: 
  Country: None (occurrence: None)
  Receive Date: 20080718
  Receipt Date: 20080711
  Transmission Date: 20090109
  Serious: Yes (Death, Hospitalization, Congenital Anomaly)
  Sender: FDA-Public Use
  Company Number: A0699596A

PATIENT
  Sex: Female
  Weight: 0.7 kg

DRUGS (3)
  1. PAXIL [Suspect]
     Indication: DEPRESSION
     Dosage: 20MG PER DAY
     Dates: start: 20010101, end: 20060501
  2. ZOLOFT [Concomitant]
  3. CEFAZOLIN [Concomitant]

REACTIONS (9)
  - ATRIAL SEPTAL DEFECT [None]
  - BRONCHOPULMONARY DYSPLASIA [None]
  - CARDIAC ARREST [None]
  - CARDIAC FAILURE [None]
  - COR PULMONALE [None]
  - DRUG EXPOSURE DURING PREGNANCY [None]
  - HYPOTENSION [None]
  - PATENT DUCTUS ARTERIOSUS [None]
  - RESPIRATORY DISTRESS [None]
